FAERS Safety Report 8989324 (Version 1)
Quarter: 2012Q4

REPORT INFORMATION
  Report Type: Report from Study
  Country: JP (occurrence: JP)
  Receive Date: 20121228
  Receipt Date: 20121228
  Transmission Date: 20130627
  Serious: Yes (Hospitalization, Other)
  Sender: FDA-Public Use
  Company Number: JP-GENZYME-THYM-1002646

PATIENT
  Age: 21 Year
  Sex: Female
  Weight: 53 kg

DRUGS (17)
  1. THYMOGLOBULIN [Suspect]
     Indication: APLASTIC ANAEMIA
     Dosage: 200 mg, qd
     Route: 042
     Dates: start: 20100802, end: 20100806
  2. THYMOGLOBULIN [Suspect]
     Dosage: 150 mg, qd
     Route: 065
     Dates: start: 20110704, end: 20110708
  3. ACETAMINOPHEN [Concomitant]
     Indication: HEADACHE
     Dosage: UNK
     Route: 065
     Dates: start: 20100729
  4. ACETAMINOPHEN [Concomitant]
     Indication: PYREXIA
  5. CICLOSPORIN [Concomitant]
     Indication: APLASTIC ANAEMIA
     Dosage: UNK
     Route: 065
     Dates: start: 20100730
  6. AMPHOTERICIN B [Concomitant]
     Indication: PROPHYLAXIS
     Dosage: UNK
     Route: 065
     Dates: start: 20100730, end: 20100817
  7. G-CSF [Concomitant]
     Indication: APLASTIC ANAEMIA
     Dosage: UNK
     Route: 065
     Dates: start: 20100729
  8. FAMOTIDINE [Concomitant]
     Indication: PROPHYLAXIS AGAINST GASTROINTESTINAL ULCER
     Dosage: UNK
     Route: 065
     Dates: start: 20100730
  9. PLATELETS, HUMAN BLOOD [Concomitant]
     Indication: APLASTIC ANAEMIA
     Dosage: UNK
     Route: 065
     Dates: start: 20100802
  10. MAGNESIUM OXIDE [Concomitant]
     Indication: CONSTIPATION
     Dosage: UNK
     Route: 065
     Dates: start: 20100804
  11. LOXOPROFEN SODIUM [Concomitant]
     Indication: HEADACHE
     Dosage: UNK
     Route: 065
     Dates: start: 20100805
  12. LOXOPROFEN SODIUM [Concomitant]
     Indication: PYREXIA
  13. CARBAZOCHROME SODIUM SULFONATE [Concomitant]
     Indication: MENORRHAGIA
     Dosage: UNK
     Route: 065
     Dates: start: 20100819, end: 20100823
  14. METHYLPREDNISOLONE SODIUM SUCCINATE [Concomitant]
     Indication: PREMEDICATION
     Dosage: UNK
     Route: 065
     Dates: start: 20100802, end: 20100807
  15. LENOGRASTIM [Concomitant]
     Indication: APLASTIC ANAEMIA
     Dosage: UNK
     Route: 065
     Dates: start: 20100802
  16. CHLORPHENIRAMINE MAL W [Concomitant]
     Indication: ALLERGY PROPHYLAXIS
     Dosage: UNK
     Route: 065
     Dates: start: 20100913
  17. GLYCYRRHIZIN-GLYCEINE-CYSTEINE COMBINED DRUG [Concomitant]
     Indication: PROPHYLAXIS
     Dosage: UNK
     Route: 065
     Dates: start: 20100802

REACTIONS (6)
  - Liver disorder [Recovered/Resolved]
  - Febrile neutropenia [Recovered/Resolved]
  - Staphylococcal sepsis [Recovered/Resolved]
  - Serum sickness [Recovered/Resolved]
  - Cytomegalovirus infection [Recovered/Resolved]
  - Rash [Recovered/Resolved]
